FAERS Safety Report 8530294-2 (Version None)
Quarter: 2012Q3

REPORT INFORMATION
  Report Type: 
  Country: None (occurrence: None)
  Receive Date: 20120710
  Receipt Date: 20120626
  Transmission Date: 20120928
  Serious: Yes (Hospitalization)
  Sender: FDA-Public Use
  Company Number: 2012MA008057

PATIENT
  Age: 30 Year
  Sex: Male

DRUGS (4)
  1. MIRTAZAPINE [Suspect]
     Indication: ANXIETY
     Dosage: 15 MG;QD;PO
     Route: 048
     Dates: start: 20120416, end: 20120502
  2. FLUCLOXACILLIN [Concomitant]
  3. LORAZEPAM [Concomitant]
  4. ACETAMINOPHEN [Concomitant]

REACTIONS (2)
  - RESTLESS LEGS SYNDROME [None]
  - PARAESTHESIA [None]
